FAERS Safety Report 5746449-6 (Version None)
Quarter: 2008Q2

REPORT INFORMATION
  Report Type: 
  Country: None (occurrence: None)
  Receive Date: 20080522
  Receipt Date: 20080521
  Transmission Date: 20081010
  Serious: Yes (Hospitalization, Other)
  Sender: FDA-Public Use
  Company Number: B0513436A

PATIENT
  Age: 70 Year
  Sex: Male
  Weight: 84 kg

DRUGS (6)
  1. AVANDIA [Suspect]
     Dosage: 4MG PER DAY
     Route: 048
     Dates: start: 20060227, end: 20080130
  2. STAGID [Concomitant]
     Dosage: 1TAB THREE TIMES PER DAY
     Route: 065
     Dates: start: 19970101
  3. VALSARTAN AND HYDROCHLOROTHIAZIDE [Concomitant]
     Route: 065
     Dates: start: 20070601
  4. GLICLAZIDE [Concomitant]
     Indication: DRUG USE FOR UNKNOWN INDICATION
     Route: 065
     Dates: start: 19970101
  5. FENOFIBRATE [Concomitant]
     Indication: DRUG USE FOR UNKNOWN INDICATION
     Route: 065
     Dates: start: 19970101
  6. LEVOTHYROXINE SODIUM [Concomitant]
     Indication: HYPOTHYROIDISM
     Route: 065
     Dates: start: 19980101

REACTIONS (8)
  - ANAEMIA [None]
  - ASTHENIA [None]
  - CHEST PAIN [None]
  - DYSPNOEA EXERTIONAL [None]
  - MALAISE [None]
  - RENAL FAILURE ACUTE [None]
  - SENSE OF OPPRESSION [None]
  - WEIGHT INCREASED [None]
